FAERS Safety Report 21174371 (Version 2)
Quarter: 2022Q3

REPORT INFORMATION
  Report Type: Report from Study
  Country: ES (occurrence: ES)
  Receive Date: 20220804
  Receipt Date: 20220811
  Transmission Date: 20221027
  Serious: Yes (Hospitalization)
  Sender: FDA-Public Use
  Company Number: ES-ABBVIE-22K-144-4462740-00

PATIENT
  Age: 75 Year
  Sex: Male

DRUGS (5)
  1. CARBIDOPA\LEVODOPA [Suspect]
     Active Substance: CARBIDOPA\LEVODOPA
     Indication: Parkinson^s disease
     Route: 050
     Dates: start: 20210219
  2. CARBIDOPA\LEVODOPA [Suspect]
     Active Substance: CARBIDOPA\LEVODOPA
     Dosage: DECREASED CONTINUES DOSE 0.2 ML
     Route: 050
  3. OLANZAPINE [Concomitant]
     Active Substance: OLANZAPINE
     Indication: Product used for unknown indication
  4. ZYPREXA [Concomitant]
     Active Substance: OLANZAPINE
     Indication: Delusion
     Route: 048
  5. ZYPREXA [Concomitant]
     Active Substance: OLANZAPINE
     Route: 048
     Dates: start: 20220708

REACTIONS (7)
  - Gastrointestinal viral infection [Recovering/Resolving]
  - Mobility decreased [Recovered/Resolved]
  - Depressed mood [Unknown]
  - Delirium [Recovered/Resolved]
  - Unevaluable event [Recovered/Resolved]
  - Therapeutic product effect incomplete [Not Recovered/Not Resolved]
  - Dyskinesia [Recovered/Resolved]

NARRATIVE: CASE EVENT DATE: 20220701
